FAERS Safety Report 11175063 (Version 1)
Quarter: 2015Q2

REPORT INFORMATION
  Report Type: Spontaneous
  Country: US (occurrence: None)
  Receive Date: 20150515
  Receipt Date: 20150515
  Transmission Date: 20150821
  Serious: Yes (Hospitalization)
  Sender: FDA-Public Use
  Company Number: 2014001040

PATIENT
  Age: 38 Year
  Sex: Female

DRUGS (2)
  1. CIMZIA [Suspect]
     Active Substance: CERTOLIZUMAB PEGOL
     Indication: CROHN^S DISEASE
     Route: 058
     Dates: start: 20140411
  2. CHANTIX (VARENICINE TARTRATE) [Concomitant]

REACTIONS (4)
  - Vomiting [None]
  - Crohn^s disease [None]
  - Nasopharyngitis [None]
  - Diarrhoea [None]

NARRATIVE: CASE EVENT DATE: 20140527
